FAERS Safety Report 16535491 (Version 1)
Quarter: 2019Q3

REPORT INFORMATION
  Report Type: Spontaneous
  Country: US (occurrence: US)
  Receive Date: 20190705
  Receipt Date: 20190705
  Transmission Date: 20191004
  Serious: No
  Sender: FDA-Public Use
  Company Number: US-PFIZER INC-2019284710

PATIENT
  Age: 35 Year
  Sex: Female
  Weight: 132 kg

DRUGS (1)
  1. CHANTIX [Suspect]
     Active Substance: VARENICLINE TARTRATE
     Indication: SMOKING CESSATION THERAPY
     Dosage: 1 MG, 2X/DAY (1 MG IN THE MORNING AND 1 MG IN THE EVENING)
     Dates: start: 20190607

REACTIONS (1)
  - Drug ineffective [Unknown]
